FAERS Safety Report 8442061 (Version 3)
Quarter: 2013Q2

REPORT INFORMATION
  Report Type: Spontaneous
  Country: US (occurrence: US)
  Receive Date: 20120305
  Receipt Date: 20130627
  Transmission Date: 20140414
  Serious: Yes (Other)
  Sender: FDA-Public Use
  Company Number: US-PFIZER INC-2012056004

PATIENT
  Age: 75 Year
  Sex: Male
  Weight: 79.37 kg

DRUGS (11)
  1. TIKOSYN [Suspect]
     Indication: ATRIAL FIBRILLATION
     Dosage: 500 UG, 2X/DAY
     Dates: start: 20120213
  2. TIKOSYN [Suspect]
     Indication: HEART RATE INCREASED
     Dosage: 500 UG, 2X/DAY
     Route: 065
     Dates: start: 2012, end: 2012
  3. METOPROLOL TARTRATE [Suspect]
     Dosage: 25 MG, UNK
     Route: 065
     Dates: start: 20110204
  4. METOPROLOL TARTRATE [Suspect]
     Dosage: 12.5 MG, UNK
     Route: 065
  5. METOPROLOL TARTRATE [Suspect]
     Dosage: UNK
     Route: 065
     Dates: end: 2012
  6. AMLODIPINE BESILATE [Suspect]
     Dosage: 10 MG, DAILY
     Route: 065
     Dates: start: 20110204
  7. AMLODIPINE BESILATE [Suspect]
     Dosage: UNK
     Route: 065
     Dates: end: 2012
  8. ASPIRINE [Suspect]
     Indication: CARDIAC DISORDER
     Dosage: 81 MG, UNK
     Route: 065
     Dates: start: 20120213
  9. ASPIRINE [Suspect]
     Indication: ANTICOAGULANT THERAPY
  10. WARFARIN SODIUM [Suspect]
     Indication: ANTICOAGULANT THERAPY
     Dosage: 5 MG, DAILY
     Dates: start: 20110204
  11. WARFARIN SODIUM [Suspect]
     Dosage: UNK
     Route: 065
     Dates: end: 2012

REACTIONS (13)
  - Mental impairment [Unknown]
  - Pain in extremity [Recovering/Resolving]
  - Oedema peripheral [Unknown]
  - Dyspnoea [Unknown]
  - Gait disturbance [Unknown]
  - Chest discomfort [Unknown]
  - Dizziness [Unknown]
  - Breast pain [Unknown]
  - Pain in extremity [Not Recovered/Not Resolved]
  - Asthenia [Not Recovered/Not Resolved]
  - Insomnia [Not Recovered/Not Resolved]
  - Musculoskeletal pain [Unknown]
  - Dyspepsia [Unknown]
